FAERS Safety Report 10214878 (Version 1)
Quarter: 2014Q2

REPORT INFORMATION
  Report Type: Spontaneous
  Country: US (occurrence: US)
  Receive Date: 20140603
  Receipt Date: 20140603
  Transmission Date: 20141212
  Serious: No
  Sender: FDA-Public Use
  Company Number: US-PFIZER INC-2013338409

PATIENT
  Sex: Female

DRUGS (3)
  1. ADVIL [Suspect]
     Indication: PROCEDURAL PAIN
     Dosage: 200 MG, 2X/DAY
     Route: 048
     Dates: start: 201311, end: 201311
  2. ADVIL [Suspect]
     Dosage: 200 MG, 1X/DAY
     Route: 048
     Dates: start: 201311
  3. CELEBREX [Suspect]
     Indication: PROCEDURAL PAIN
     Dosage: UNK, 1X/DAY
     Route: 048
     Dates: start: 201311

REACTIONS (2)
  - Off label use [Unknown]
  - Toothache [Unknown]
